FAERS Safety Report 8372706-3 (Version None)
Quarter: 2012Q2

REPORT INFORMATION
  Report Type: 
  Country: None (occurrence: None)
  Receive Date: 20120521
  Receipt Date: 20120514
  Transmission Date: 20120825
  Serious: Yes (Hospitalization)
  Sender: FDA-Public Use
  Company Number: DE-B.I. PHARMACEUTICALS,INC./RIDGEFIELD-2012-DE-01041DE

PATIENT
  Sex: Male
  Weight: 62 kg

DRUGS (8)
  1. RAMIPRIL-HCT [Concomitant]
     Dosage: 1 ANZ
  2. CRESTOR [Concomitant]
     Dosage: 1 ANZ
  3. PRADAXA [Suspect]
     Indication: COAGULOPATHY
     Dosage: 220 MG
     Dates: start: 20120223
  4. AMIODARONE HCL [Suspect]
     Dates: start: 20050201, end: 20120322
  5. LEFAX [Concomitant]
     Dosage: 3 ANZ
  6. METOPROLOL [Concomitant]
     Dosage: 2 ANZ
  7. PANTOPRAZOLE [Concomitant]
     Dosage: 1 ANZ
  8. CLOPIDOGREL [Concomitant]
     Dosage: 1 ANZ

REACTIONS (10)
  - ABDOMINAL PAIN UPPER [None]
  - FATIGUE [None]
  - MUSCULOSKELETAL DISCOMFORT [None]
  - HYPERSENSITIVITY [None]
  - ASTHENIA [None]
  - VOMITING [None]
  - NAUSEA [None]
  - HYPERACUSIS [None]
  - DEPRESSION [None]
  - TREMOR [None]
